FAERS Safety Report 7606786-7 (Version None)
Quarter: 2011Q3

REPORT INFORMATION
  Report Type: 
  Country: None (occurrence: None)
  Receive Date: 20110713
  Receipt Date: 20110621
  Transmission Date: 20111222
  Serious: Yes (Hospitalization)
  Sender: FDA-Public Use
  Company Number: US-GLAXOSMITHKLINE-A0806201A

PATIENT
  Age: 73 Year
  Sex: Male
  Weight: 70.9 kg

DRUGS (21)
  1. ATENOLOL [Concomitant]
  2. VERPAMIL HCL [Concomitant]
  3. GLIPIZIDE [Concomitant]
  4. VICODIN [Concomitant]
  5. HYDROCHLOROTHIAZIDE [Concomitant]
  6. LANOXIN [Concomitant]
  7. GLYBURIDE [Concomitant]
  8. DOCUSATE [Concomitant]
  9. ASPIRIN [Concomitant]
  10. ALPRAZOLAM [Concomitant]
  11. PREVACID [Concomitant]
  12. MONOPRIL [Concomitant]
  13. GLUCOPHAGE [Concomitant]
  14. ZESTRIL [Concomitant]
  15. PRAZOSIN HCL [Concomitant]
  16. NEURONTIN [Concomitant]
  17. DIGOXIN [Concomitant]
  18. WARFARIN SODIUM [Concomitant]
  19. METFORMIN HCL [Concomitant]
  20. AVANDIA [Suspect]
     Indication: DIABETES MELLITUS
     Dosage: 8MG PER DAY
     Route: 048
     Dates: start: 19991102
  21. PAXIL [Concomitant]

REACTIONS (4)
  - CARDIAC FAILURE CONGESTIVE [None]
  - SICK SINUS SYNDROME [None]
  - ACUTE MYOCARDIAL INFARCTION [None]
  - ATRIAL FIBRILLATION [None]
